FAERS Safety Report 8326317-6 (Version None)
Quarter: 2012Q2

REPORT INFORMATION
  Report Type: 
  Country: None (occurrence: None)
  Receive Date: 20120501
  Receipt Date: 20120420
  Transmission Date: 20120825
  Serious: Yes (Other)
  Sender: FDA-Public Use
  Company Number: RU-ELI_LILLY_AND_COMPANY-RU201204007919

PATIENT
  Age: 22 Year
  Sex: Female

DRUGS (2)
  1. PIRLINDOLE [Concomitant]
     Indication: SCHIZOPHRENIA, PARANOID TYPE
  2. ZYPREXA [Suspect]
     Indication: SCHIZOPHRENIA, PARANOID TYPE
     Dosage: 10 MG, EACH MORNING
     Dates: start: 20091101, end: 20091201

REACTIONS (2)
  - MUSCLE RIGIDITY [None]
  - BRADYPHRENIA [None]
